FAERS Safety Report 8196206-9 (Version None)
Quarter: 2012Q1

REPORT INFORMATION
  Report Type: 
  Country: None (occurrence: None)
  Receive Date: 20120306
  Receipt Date: 20120223
  Transmission Date: 20120608
  Serious: No
  Sender: FDA-Public Use
  Company Number: TUK2012A00044

PATIENT
  Age: 71 Month

DRUGS (3)
  1. GLICLAZIDE [Concomitant]
  2. METFORMIN HCL [Concomitant]
  3. PIOGLITAZONE HYDROCHLORIDE [Suspect]
     Indication: DIABETES MELLITUS
     Dosage: (30 MG), ORAL
     Route: 048
     Dates: start: 20110125, end: 20120204

REACTIONS (1)
  - BLADDER TRANSITIONAL CELL CARCINOMA [None]
